FAERS Safety Report 9027160 (Version 1)
Quarter: 2013Q1

REPORT INFORMATION
  Report Type: Spontaneous
  Country: US (occurrence: US)
  Receive Date: 20130123
  Receipt Date: 20130123
  Transmission Date: 20140127
  Serious: Yes (Death)
  Sender: FDA-Public Use
  Company Number: US-GLAXOSMITHKLINE-A1008591A

PATIENT
  Age: 11 Year
  Sex: Female

DRUGS (1)
  1. ADVAIR [Suspect]

REACTIONS (1)
  - Asthma [Fatal]
